FAERS Safety Report 9735893 (Version 2)
Quarter: 2013Q4

REPORT INFORMATION
  Report Type: Spontaneous
  Country: US (occurrence: US)
  Receive Date: 20131206
  Receipt Date: 20131206
  Transmission Date: 20140711
  Serious: No
  Sender: FDA-Public Use
  Company Number: US-GILEAD-2009-0024057

PATIENT
  Sex: Female

DRUGS (6)
  1. LETAIRIS [Suspect]
     Indication: PULMONARY ARTERIAL HYPERTENSION
     Route: 048
     Dates: start: 20090804
  2. LASIX [Concomitant]
  3. POTASSIUM [Concomitant]
  4. OXYCODONE [Concomitant]
  5. TRAZODONE [Concomitant]
  6. NICOTINE [Concomitant]

REACTIONS (3)
  - Muscle spasms [Recovered/Resolved]
  - Muscle twitching [Recovered/Resolved]
  - Neuralgia [Recovered/Resolved]
